FAERS Safety Report 10928598 (Version 2)
Quarter: 2015Q2

REPORT INFORMATION
  Report Type: Spontaneous
  Country: US (occurrence: US)
  Receive Date: 20150319
  Receipt Date: 20150524
  Transmission Date: 20150821
  Serious: No
  Sender: FDA-Public Use
  Company Number: US-JNJFOC-20130711811

PATIENT

DRUGS (5)
  1. METHYLPHENIDATE HYDROCHLORIDE. [Suspect]
     Active Substance: METHYLPHENIDATE HYDROCHLORIDE
     Indication: ATTENTION DEFICIT/HYPERACTIVITY DISORDER
     Route: 048
  2. ATOMOXETINE [Suspect]
     Active Substance: ATOMOXETINE
     Indication: ATTENTION DEFICIT/HYPERACTIVITY DISORDER
     Route: 065
  3. ATOMOXETINE [Suspect]
     Active Substance: ATOMOXETINE
     Indication: ATTENTION DEFICIT/HYPERACTIVITY DISORDER
     Route: 065
  4. METHYLPHENIDATE HYDROCHLORIDE. [Suspect]
     Active Substance: METHYLPHENIDATE HYDROCHLORIDE
     Indication: ATTENTION DEFICIT/HYPERACTIVITY DISORDER
     Route: 048
  5. ATOMOXETINE [Suspect]
     Active Substance: ATOMOXETINE
     Indication: ATTENTION DEFICIT/HYPERACTIVITY DISORDER
     Route: 065

REACTIONS (1)
  - Pain in extremity [Unknown]
